FAERS Safety Report 8267176-X (Version None)
Quarter: 2012Q2

REPORT INFORMATION
  Report Type: 
  Country: None (occurrence: None)
  Receive Date: 20120409
  Receipt Date: 20120403
  Transmission Date: 20120825
  Serious: Yes (Death)
  Sender: FDA-Public Use
  Company Number: US-PFIZER INC-2012084700

PATIENT
  Sex: Male
  Weight: 79.365 kg

DRUGS (2)
  1. REVATIO [Suspect]
     Indication: PULMONARY HYPERTENSION
     Dosage: 20 MG, 3X/DAY
     Route: 048
  2. REVATIO [Suspect]
     Dosage: 20 MG, DAILY

REACTIONS (1)
  - PULMONARY HYPERTENSION [None]
